FAERS Safety Report 6521839-2 (Version None)
Quarter: 2009Q4

REPORT INFORMATION
  Report Type: 
  Country: None (occurrence: None)
  Receive Date: 20091230
  Receipt Date: 20091216
  Transmission Date: 20100525
  Serious: Yes (Other)
  Sender: FDA-Public Use
  Company Number: US-PFIZER INC-2009299899

PATIENT
  Sex: Female

DRUGS (6)
  1. ESTRADIOL AND ESTRADIOL CIPIONATE [Suspect]
     Indication: HORMONE REPLACEMENT THERAPY
     Dosage: UNK
  2. PREMARIN [Suspect]
     Indication: HORMONE REPLACEMENT THERAPY
     Dosage: UNK
  3. PREMARIN [Suspect]
     Indication: HOT FLUSH
  4. PREMARIN [Suspect]
     Indication: VULVOVAGINAL DRYNESS
  5. ESTRATEST [Suspect]
     Indication: HORMONE REPLACEMENT THERAPY
     Dosage: UNK
  6. BISOPROLOL FUMARATE AND HYDROCHLOROTHIAZIDE [Concomitant]
     Dosage: 2.5MG/6.26MG
     Route: 048

REACTIONS (6)
  - CARDIAC DISORDER [None]
  - CHEST PAIN [None]
  - HYPERTENSION [None]
  - INFLUENZA LIKE ILLNESS [None]
  - PULMONARY CONGESTION [None]
  - THYROID NEOPLASM [None]
